FAERS Safety Report 5986751-6 (Version None)
Quarter: 2008Q4

REPORT INFORMATION
  Report Type: 
  Country: None (occurrence: None)
  Receive Date: 20081209
  Receipt Date: 20081113
  Transmission Date: 20090506
  Serious: No
  Sender: FDA-Public Use
  Company Number: US-BAYER-200814402BCC

PATIENT
  Age: 87 Year
  Sex: Female
  Weight: 86 kg

DRUGS (6)
  1. ALEVE [Suspect]
     Indication: ARTHRITIS
     Dosage: TOTAL DAILY DOSE: 220 MG  UNIT DOSE: 220 MG
     Route: 048
     Dates: start: 20081111, end: 20081112
  2. ATENOLOL [Concomitant]
  3. COZAAR [Concomitant]
  4. POTASSIUM CHLORIDE [Concomitant]
  5. VITAMIN E [Concomitant]
  6. VITAMIN D [Concomitant]

REACTIONS (1)
  - OESOPHAGEAL PAIN [None]
